FAERS Safety Report 5012335-2 (Version None)
Quarter: 2006Q2

REPORT INFORMATION
  Report Type: 
  Country: None (occurrence: None)
  Receive Date: 20060525
  Receipt Date: 20060525
  Transmission Date: 20061013
  Serious: Yes (Death)
  Sender: FDA-Public Use
  Company Number: None

PATIENT
  Age: 72 Year
  Sex: Male
  Weight: 66.8 kg

DRUGS (3)
  1. GEODON [Suspect]
     Indication: AGITATION
     Dosage: 10MG  X 1 DOSE IM
     Route: 030
     Dates: start: 20060118
  2. LEVOFLOXACIN [Concomitant]
  3. MORPHINE [Concomitant]

REACTIONS (6)
  - ATRIAL FIBRILLATION [None]
  - BUNDLE BRANCH BLOCK RIGHT [None]
  - CARDIAC ARREST [None]
  - ELECTROCARDIOGRAM QT PROLONGED [None]
  - NERVOUS SYSTEM DISORDER [None]
  - VENTRICULAR TACHYCARDIA [None]
